FAERS Safety Report 16439151 (Version 1)
Quarter: 2019Q2

REPORT INFORMATION
  Report Type: Report from Study
  Country: CN (occurrence: CN)
  Receive Date: 20190617
  Receipt Date: 20190617
  Transmission Date: 20190711
  Serious: Yes (Other)
  Sender: FDA-Public Use
  Company Number: CN-ROCHE-2333493

PATIENT

DRUGS (3)
  1. OXALIPLATIN. [Suspect]
     Active Substance: OXALIPLATIN
     Indication: RECTAL CANCER
     Dosage: ON THE FIRST DAY OF EACH 21 DAYS CYCLE (STRENGTH: 100 ML: 0.1 G)
     Route: 041
  2. GLUCOSE [Concomitant]
     Active Substance: DEXTROSE
     Dosage: 5% (500 ML: 25 G)
     Route: 041
  3. CAPECITABINE. [Suspect]
     Active Substance: CAPECITABINE
     Indication: RECTAL CANCER
     Route: 048

REACTIONS (5)
  - Bone marrow failure [Unknown]
  - Gastrointestinal disorder [Unknown]
  - Cutaneous symptom [Unknown]
  - Palmar-plantar erythrodysaesthesia syndrome [Unknown]
  - Neurotoxicity [Unknown]
